FAERS Safety Report 6133496-8 (Version None)
Quarter: 2009Q1

REPORT INFORMATION
  Report Type: 
  Country: None (occurrence: None)
  Receive Date: 20090326
  Receipt Date: 20090316
  Transmission Date: 20090719
  Serious: Yes (Disabling, Other)
  Sender: FDA-Public Use
  Company Number: ZA-BAXTER-2009BH004093

PATIENT
  Age: 57 Year
  Sex: Male

DRUGS (2)
  1. BALANCED SALT [Suspect]
     Indication: CATARACT OPERATION
     Route: 065
     Dates: start: 20090225, end: 20090225
  2. BALANCED SALT [Suspect]
     Route: 065
     Dates: start: 20090225, end: 20090225

REACTIONS (1)
  - ENDOPHTHALMITIS [None]
